FAERS Safety Report 16647785 (Version 1)
Quarter: 2019Q3

REPORT INFORMATION
  Report Type: Spontaneous
  Country: FI (occurrence: FI)
  Receive Date: 20190730
  Receipt Date: 20190730
  Transmission Date: 20191004
  Serious: Yes (Other)
  Sender: FDA-Public Use
  Company Number: FI-ARBOR PHARMACEUTICALS, LLC-FI-2019ARB001156

PATIENT
  Age: 8 Year
  Sex: Male
  Weight: 27 kg

DRUGS (3)
  1. ERYTHROMYCIN. [Suspect]
     Active Substance: ERYTHROMYCIN
     Indication: ANTIBIOTIC PROPHYLAXIS
     Dosage: 400 MG, UNK
     Route: 042
  2. MIDAZOLAM [Suspect]
     Active Substance: MIDAZOLAM HYDROCHLORIDE
     Indication: PREMEDICATION
     Dosage: 0.5 MG/KG, UNK
     Route: 048
  3. ATROPINE. [Concomitant]
     Active Substance: ATROPINE
     Indication: PREMEDICATION
     Dosage: 0.03 MG/KG, UNK

REACTIONS (2)
  - Loss of consciousness [Recovered/Resolved]
  - Drug interaction [Recovered/Resolved]
